FAERS Safety Report 9551914 (Version 1)
Quarter: 2013Q3

REPORT INFORMATION
  Report Type: Spontaneous
  Country: US (occurrence: US)
  Receive Date: 20130925
  Receipt Date: 20130925
  Transmission Date: 20140515
  Serious: No
  Sender: FDA-Public Use
  Company Number: US-B.I. PHARMACEUTICALS,INC./RIDGEFIELD-2013-BI-29299BP

PATIENT
  Age: 55 Year
  Sex: Female
  Weight: 79 kg

DRUGS (4)
  1. COMBIVENT [Suspect]
     Indication: CHRONIC OBSTRUCTIVE PULMONARY DISEASE
     Dosage: STRENGTH: 20 MCG / 100 MCG; DAILY DOSE: 80MCG/400MCG
     Route: 055
     Dates: start: 201306
  2. ALBUTEROL 0.083% [Concomitant]
     Indication: CHRONIC OBSTRUCTIVE PULMONARY DISEASE
     Route: 055
     Dates: start: 2005
  3. DIAZEPAM [Concomitant]
     Indication: ANXIETY
     Dosage: 15 MG
     Route: 048
     Dates: start: 2002
  4. HYDROCODONE [Concomitant]
     Indication: PAIN
     Dosage: 40 MG
     Route: 048
     Dates: start: 2003

REACTIONS (2)
  - Retching [Not Recovered/Not Resolved]
  - Overdose [Unknown]
